FAERS Safety Report 10183875 (Version 1)
Quarter: 2014Q2

REPORT INFORMATION
  Report Type: Spontaneous
  Country: CN (occurrence: CN)
  Receive Date: 20140520
  Receipt Date: 20140520
  Transmission Date: 20141212
  Serious: Yes (Other)
  Sender: FDA-Public Use
  Company Number: CN-BAYER-2014-073918

PATIENT
  Age: 76 Year
  Sex: Female

DRUGS (1)
  1. ULTRAVIST 370 [Suspect]
     Indication: COMPUTERISED TOMOGRAM
     Dosage: 100 ML, ONCE
     Dates: start: 20140411, end: 20140411

REACTIONS (4)
  - Unresponsive to stimuli [Recovered/Resolved]
  - Foaming at mouth [None]
  - Urinary incontinence [None]
  - Visual impairment [Not Recovered/Not Resolved]
